FAERS Safety Report 6895749-5 (Version None)
Quarter: 2010Q3

REPORT INFORMATION
  Report Type: 
  Country: None (occurrence: None)
  Receive Date: 20100728
  Receipt Date: 20100714
  Transmission Date: 20110219
  Serious: Yes (Hospitalization, Other)
  Sender: FDA-Public Use
  Company Number: 001131

PATIENT
  Sex: Male
  Weight: 94.3482 kg

DRUGS (4)
  1. LACOSAMIDE [Suspect]
     Indication: EPILEPSY
     Dosage: (ORAL)
     Route: 048
     Dates: start: 20090409, end: 20090618
  2. ERGOCALCIFEROL [Concomitant]
  3. CALCIUM [Concomitant]
  4. TYLENOL (CAPLET) [Concomitant]

REACTIONS (8)
  - CONFUSIONAL STATE [None]
  - DRUG WITHDRAWAL SYNDROME [None]
  - FACE INJURY [None]
  - FALL [None]
  - FEELING ABNORMAL [None]
  - GRAND MAL CONVULSION [None]
  - HEADACHE [None]
  - TREATMENT NONCOMPLIANCE [None]
